FAERS Safety Report 6542497-7 (Version None)
Quarter: 2010Q1

REPORT INFORMATION
  Report Type: 
  Country: None (occurrence: None)
  Receive Date: 20100119
  Receipt Date: 20100107
  Transmission Date: 20100710
  Serious: Yes (Other)
  Sender: FDA-Public Use
  Company Number: CA-WYE-H12979310

PATIENT
  Age: 54 Year
  Sex: Female

DRUGS (1)
  1. TECTA [Suspect]
     Indication: GASTROOESOPHAGEAL REFLUX DISEASE
     Route: 048
     Dates: start: 20090625, end: 20090626

REACTIONS (3)
  - HEAD DISCOMFORT [None]
  - PHOTOPSIA [None]
  - VISION BLURRED [None]
